FAERS Safety Report 20463057 (Version 1)
Quarter: 2022Q1

REPORT INFORMATION
  Report Type: Spontaneous
  Country: US (occurrence: US)
  Receive Date: 20220211
  Receipt Date: 20220211
  Transmission Date: 20220423
  Serious: Yes (Congenital Anomaly, Other)
  Sender: FDA-Public Use
  Company Number: US-LUNDBECK-DKLU3043952

PATIENT
  Sex: Male

DRUGS (3)
  1. ESCITALOPRAM OXALATE [Suspect]
     Active Substance: ESCITALOPRAM OXALATE
     Indication: Exposure during pregnancy
     Route: 064
  2. LABETALOL [Suspect]
     Active Substance: LABETALOL\LABETALOL HYDROCHLORIDE
     Indication: Exposure during pregnancy
     Route: 064
  3. ALBUTEROL [Suspect]
     Active Substance: ALBUTEROL
     Indication: Exposure during pregnancy
     Dosage: AS-NEEDED
     Route: 064

REACTIONS (10)
  - Anal atresia [Unknown]
  - Bladder agenesis [Unknown]
  - Ectopic ureter [Unknown]
  - Renal dysplasia [Unknown]
  - Penoscrotal transposition [Unknown]
  - Oligohydramnios [Unknown]
  - Neonatal anuria [Unknown]
  - Respiratory distress [Unknown]
  - Penile curvature [Unknown]
  - Pregnancy [Unknown]
